FAERS Safety Report 4699861-0 (Version None)
Quarter: 2005Q2

REPORT INFORMATION
  Report Type: 
  Country: None (occurrence: None)
  Receive Date: 20050623
  Receipt Date: 20050607
  Transmission Date: 20051028
  Serious: Yes (Death)
  Sender: FDA-Public Use
  Company Number: DSA_70662_2005

PATIENT
  Age: 41 Year
  Sex: Male
  Weight: 155 kg

DRUGS (4)
  1. DISTALEGESIC [Suspect]
     Dosage: DF
     Route: 048
  2. TEMAZEPAM [Concomitant]
  3. ZOLPICLONE [Concomitant]
  4. ACETAMINOPHEN [Concomitant]

REACTIONS (6)
  - BLOOD PRESSURE DECREASED [None]
  - CARDIAC ARREST [None]
  - HAEMATEMESIS [None]
  - HEART RATE INCREASED [None]
  - INTENTIONAL MISUSE [None]
  - OVERDOSE [None]
